FAERS Safety Report 6942818-7 (Version None)
Quarter: 2010Q3

REPORT INFORMATION
  Report Type: 
  Country: None (occurrence: None)
  Receive Date: 20100826
  Receipt Date: 20100818
  Transmission Date: 20110219
  Serious: Yes (Hospitalization)
  Sender: FDA-Public Use
  Company Number: DE-ROCHE-721073

PATIENT
  Sex: Female
  Weight: 89 kg

DRUGS (2)
  1. CAPECITABINE [Suspect]
     Indication: BREAST CANCER
     Dosage: 2000 MG, QD
     Route: 048
     Dates: start: 20100706
  2. LAPATINIB [Suspect]
     Indication: BREAST CANCER
     Dosage: 1250 MG, QD
     Route: 048
     Dates: start: 20100706

REACTIONS (1)
  - GENERAL PHYSICAL HEALTH DETERIORATION [None]
